FAERS Safety Report 4495264-2 (Version None)
Quarter: 2004Q4

REPORT INFORMATION
  Report Type: 
  Country: None (occurrence: None)
  Receive Date: 20041108
  Receipt Date: 20040812
  Transmission Date: 20050328
  Serious: No
  Sender: FDA-Public Use
  Company Number: US-GLAXOSMITHKLINE-A0521961A

PATIENT
  Age: 72 Year
  Sex: Male

DRUGS (5)
  1. AVANDAMET [Suspect]
     Dosage: 1TAB TWICE PER DAY
     Route: 048
     Dates: start: 20040501
  2. PRAVACHOL [Concomitant]
  3. ATENOLOL [Concomitant]
  4. FLOMAX [Concomitant]
  5. SAW PALMETTO [Concomitant]

REACTIONS (2)
  - BLOOD GLUCOSE INCREASED [None]
  - SWELLING [None]
